FAERS Safety Report 6620909-8 (Version None)
Quarter: 2010Q1

REPORT INFORMATION
  Report Type: 
  Country: None (occurrence: None)
  Receive Date: 20100308
  Receipt Date: 20100308
  Transmission Date: 20100710
  Serious: Yes (Other)
  Sender: FDA-Public Use
  Company Number: None

PATIENT
  Age: 25 Year
  Sex: Male
  Weight: 77.1115 kg

DRUGS (1)
  1. CREST PRO HEALTH MOUTHWASH NORMAL PROCTOR AND GAMBLE [Suspect]
     Dosage: ONE THIRTY SECOND SWISH ONCE A DAY PO
     Route: 048
     Dates: start: 20100222, end: 20100305

REACTIONS (1)
  - TOOTH DISCOLOURATION [None]
